FAERS Safety Report 22280145 (Version 2)
Quarter: 2023Q2

REPORT INFORMATION
  Report Type: Report from Study
  Country: RU (occurrence: None)
  Receive Date: 20230503
  Receipt Date: 20230525
  Transmission Date: 20230721
  Serious: Yes (Other)
  Sender: FDA-Public Use
  Company Number: 2023A100240

PATIENT
  Age: 23 Year
  Sex: Female
  Weight: 50 kg

DRUGS (10)
  1. ANIFROLUMAB [Suspect]
     Active Substance: ANIFROLUMAB
     Indication: Systemic lupus erythematosus
     Route: 041
     Dates: start: 20230120
  2. ANIFROLUMAB [Suspect]
     Active Substance: ANIFROLUMAB
     Indication: Systemic lupus erythematosus
     Route: 041
     Dates: start: 20230327
  3. ANIFROLUMAB [Suspect]
     Active Substance: ANIFROLUMAB
     Indication: Systemic lupus erythematosus
     Route: 041
     Dates: start: 20230428
  4. METHYLPREDNISOLONE [Concomitant]
     Active Substance: METHYLPREDNISOLONE
     Dosage: 12-16 MG
  5. PLAQUENIL [Concomitant]
     Active Substance: HYDROXYCHLOROQUINE SULFATE
  6. OMEPRAZOLE [Concomitant]
     Active Substance: OMEPRAZOLE
  7. ELIQUIS [Concomitant]
     Active Substance: APIXABAN
  8. MYCOPHENOLATE MOFETIL [Concomitant]
     Active Substance: MYCOPHENOLATE MOFETIL
     Dosage: 1000-2000 MG
  9. BISOPROLOL [Concomitant]
     Active Substance: BISOPROLOL
  10. CALCIUM [Concomitant]
     Active Substance: CALCIUM

REACTIONS (2)
  - Oral herpes [Recovering/Resolving]
  - Herpes zoster [Recovering/Resolving]

NARRATIVE: CASE EVENT DATE: 20230220
